FAERS Safety Report 8207769-9 (Version None)
Quarter: 2012Q1

REPORT INFORMATION
  Report Type: 
  Country: None (occurrence: None)
  Receive Date: 20120314
  Receipt Date: 20120308
  Transmission Date: 20120608
  Serious: Yes (Death, Hospitalization)
  Sender: FDA-Public Use
  Company Number: CN-BAYER-2011-123086

PATIENT
  Age: 43 Year
  Sex: Male

DRUGS (5)
  1. HERBAL PREPARATION [Concomitant]
     Dosage: UNK
  2. NEXAVAR [Suspect]
     Indication: HEPATIC NEOPLASM MALIGNANT
     Dosage: UNK
     Dates: start: 20111019, end: 20111020
  3. NEXAVAR [Suspect]
     Dosage: 2 DF, UNK
     Dates: start: 20111022
  4. TACE [Concomitant]
     Indication: HEPATIC NEOPLASM MALIGNANT
     Dosage: UNK
     Dates: start: 20111001, end: 20111018
  5. NEXAVAR [Suspect]
     Dosage: 2 DF, UNK
     Dates: start: 20111021

REACTIONS (3)
  - DEATH [None]
  - BACK PAIN [None]
  - ABDOMINAL PAIN UPPER [None]
